FAERS Safety Report 23739479 (Version 1)
Quarter: 2024Q2

REPORT INFORMATION
  Report Type: Report from Study
  Country: DE (occurrence: DE)
  Receive Date: 20240413
  Receipt Date: 20240413
  Transmission Date: 20240716
  Serious: Yes (Hospitalization)
  Sender: FDA-Public Use
  Company Number: None

PATIENT
  Age: 58 Year
  Sex: Female
  Weight: 88 kg

DRUGS (14)
  1. CAPECITABINE [Suspect]
     Active Substance: CAPECITABINE
     Indication: Breast cancer
     Route: 048
     Dates: start: 20160704, end: 20160828
  2. CAPECITABINE [Suspect]
     Active Substance: CAPECITABINE
     Indication: Breast cancer
     Route: 048
     Dates: start: 20160118, end: 20160815
  3. CAPECITABINE [Suspect]
     Active Substance: CAPECITABINE
     Indication: Breast cancer
     Route: 048
     Dates: start: 20160118, end: 20160214
  4. CAPECITABINE [Suspect]
     Active Substance: CAPECITABINE
     Indication: Breast cancer
     Route: 048
     Dates: start: 20160118, end: 20160815
  5. XARELTO [Concomitant]
     Active Substance: RIVAROXABAN
     Indication: Product used for unknown indication
     Route: 058
     Dates: start: 20160912
  6. LOPERAMIDE [Concomitant]
     Active Substance: LOPERAMIDE
     Indication: Diarrhoea
     Dosage: TIME INTERVAL: 1 AS NECESSARY
     Route: 048
     Dates: start: 20160208, end: 20160301
  7. LIDOCAINE [Concomitant]
     Active Substance: LIDOCAINE
     Indication: Mucosal inflammation
     Dosage: TIME INTERVAL: 1 AS NECESSARY: LIDOCAINE HYDROCHLORIDE
     Route: 048
     Dates: start: 20160208, end: 20160214
  8. CORTISONE [Concomitant]
     Active Substance: CORTISONE
     Indication: Rash
     Dosage: TIME INTERVAL: 1 AS NECESSARY
     Route: 058
     Dates: start: 20160208, end: 20160627
  9. BEVACIZUMAB [Suspect]
     Active Substance: BEVACIZUMAB
     Indication: Breast cancer
     Route: 042
     Dates: start: 20160118, end: 20160118
  10. BEVACIZUMAB [Suspect]
     Active Substance: BEVACIZUMAB
     Indication: Breast cancer
     Route: 042
     Dates: start: 20160815, end: 20160815
  11. BEVACIZUMAB [Suspect]
     Active Substance: BEVACIZUMAB
     Indication: Breast cancer
     Route: 042
     Dates: start: 20160704, end: 20160704
  12. DEXPANTHENOL [Concomitant]
     Active Substance: DEXPANTHENOL
     Indication: Mucosal inflammation
     Dosage: TIME INTERVAL: 1 AS NECESSARY
     Route: 048
     Dates: start: 20160208, end: 20160214
  13. DEXPANTHENOL [Concomitant]
     Active Substance: DEXPANTHENOL
     Indication: Epistaxis
     Route: 065
     Dates: start: 20160208, end: 20160214
  14. ENOXAPARIN SODIUM [Concomitant]
     Active Substance: ENOXAPARIN SODIUM
     Indication: Product used for unknown indication
     Route: 058
     Dates: start: 20160902, end: 20160911

REACTIONS (1)
  - Thrombosis [Recovered/Resolved]

NARRATIVE: CASE EVENT DATE: 20160902
